FAERS Safety Report 11280692 (Version 1)
Quarter: 2015Q3

REPORT INFORMATION
  Report Type: Spontaneous
  Country: ES (occurrence: ES)
  Receive Date: 20150717
  Receipt Date: 20150717
  Transmission Date: 20151125
  Serious: Yes (Other)
  Sender: FDA-Public Use
  Company Number: ES-BIAL, PORTELA + CA S.A.-BIAL-03046

PATIENT
  Age: 46 Year
  Sex: Female

DRUGS (1)
  1. ZEBINIX (ESLICARBAZEPINE ACETATE) [Suspect]
     Active Substance: ESLICARBAZEPINE ACETATE
     Indication: SEIZURE
     Dosage: 800 MG, 1-0-1/2
     Route: 048
     Dates: start: 20150410, end: 20150501

REACTIONS (2)
  - Off label use [Unknown]
  - Dyspnoea [Recovered/Resolved]

NARRATIVE: CASE EVENT DATE: 20150410
